FAERS Safety Report 4853968-3 (Version None)
Quarter: 2005Q4

REPORT INFORMATION
  Report Type: 
  Country: None (occurrence: None)
  Receive Date: 20051213
  Receipt Date: 20021220
  Transmission Date: 20060501
  Serious: Yes (Death, Other)
  Sender: FDA-Public Use
  Company Number: 2005BI021561

PATIENT
  Age: 56 Year
  Sex: Female

DRUGS (7)
  1. ZEVALIN [Suspect]
     Indication: NON-HODGKIN'S LYMPHOMA
     Dosage: 4.70 MCI; 1X; IV
     Route: 042
     Dates: start: 20020821, end: 20020821
  2. ZEVALIN [Suspect]
     Indication: NON-HODGKIN'S LYMPHOMA
     Dosage: 40.0 MCI; 1X; IV
     Route: 042
     Dates: start: 20020828, end: 20020828
  3. RITUXIMAB [Concomitant]
  4. BCNU [Concomitant]
  5. VP-16 [Concomitant]
  6. CYTARABINE [Concomitant]
  7. MELPHALAN [Concomitant]

REACTIONS (4)
  - CARDIO-RESPIRATORY ARREST [None]
  - CHRONIC OBSTRUCTIVE PULMONARY DISEASE [None]
  - NEOPLASM RECURRENCE [None]
  - NON-HODGKIN'S LYMPHOMA [None]
